FAERS Safety Report 4555565-6 (Version None)
Quarter: 2005Q1

REPORT INFORMATION
  Report Type: 
  Country: None (occurrence: None)
  Receive Date: 20041228
  Receipt Date: 20040329
  Transmission Date: 20050727
  Serious: Yes (Other)
  Sender: FDA-Public Use
  Company Number: PHEH2004US03591

PATIENT
  Age: 52 Year
  Sex: Female
  Weight: 68 kg

DRUGS (8)
  1. AREDIA [Suspect]
     Indication: BREAST CANCER METASTATIC
     Dosage: 90 MG, QMO, IV INFUSION
     Dates: start: 20020101, end: 20030101
  2. ZOMETA [Suspect]
     Indication: BREAST CANCER METASTATIC
     Dosage: 4 MG, QMO, IV INFUSION
     Dates: start: 20030101, end: 20040101
  3. CYTOXAN [Concomitant]
  4. FEMARA [Concomitant]
  5. DARVOCET [Concomitant]
  6. ALLEGRA [Concomitant]
  7. WELLBUTRIN [Concomitant]
  8. CELEXA [Concomitant]

REACTIONS (4)
  - ASEPTIC NECROSIS BONE [None]
  - IMPAIRED HEALING [None]
  - JAW DISORDER [None]
  - WOUND DRAINAGE [None]
